FAERS Safety Report 8880161 (Version 3)
Quarter: 2012Q4

REPORT INFORMATION
  Report Type: Report from Study
  Country: CA (occurrence: CA)
  Receive Date: 20121031
  Receipt Date: 20121127
  Transmission Date: 20130627
  Serious: Yes (Other)
  Sender: FDA-Public Use
  Company Number: CA-ROCHE-1145166

PATIENT
  Age: 48 None
  Sex: Male
  Weight: 114 kg

DRUGS (11)
  1. BEVACIZUMAB [Suspect]
     Indication: GLIOBLASTOMA
     Route: 042
     Dates: start: 20121001
  2. BEVACIZUMAB [Suspect]
     Route: 042
     Dates: start: 20121017
  3. DECADRON [Concomitant]
  4. LEVETIRACETAM [Concomitant]
  5. VALSARTAN HCT [Concomitant]
  6. PANTOLOC [Concomitant]
  7. CELEXA [Concomitant]
  8. DIPHENHYDRAMINE HCL [Concomitant]
     Indication: PREMEDICATION
     Route: 048
     Dates: start: 20121001
  9. DIPHENHYDRAMINE HCL [Concomitant]
     Route: 048
     Dates: start: 20121017, end: 20121017
  10. ACETAMINOPHEN [Concomitant]
     Indication: PREMEDICATION
     Route: 048
     Dates: start: 20121001
  11. ACETAMINOPHEN [Concomitant]
     Route: 048
     Dates: start: 20121017, end: 20121017

REACTIONS (13)
  - Fluid retention [Not Recovered/Not Resolved]
  - Oedema peripheral [Not Recovered/Not Resolved]
  - Neoplasm [Not Recovered/Not Resolved]
  - Mobility decreased [Not Recovered/Not Resolved]
  - Gait disturbance [Not Recovered/Not Resolved]
  - Fatigue [Not Recovered/Not Resolved]
  - Asthenia [Not Recovered/Not Resolved]
  - Pain in extremity [Not Recovered/Not Resolved]
  - Hyperphagia [Not Recovered/Not Resolved]
  - Joint swelling [Not Recovered/Not Resolved]
  - Oedema peripheral [Not Recovered/Not Resolved]
  - Blood pressure increased [Unknown]
  - Disease progression [Unknown]
